FAERS Safety Report 16197807 (Version 1)
Quarter: 2019Q2

REPORT INFORMATION
  Report Type: Spontaneous
  Country: US (occurrence: US)
  Receive Date: 20190414
  Receipt Date: 20190414
  Transmission Date: 20190711
  Serious: No
  Sender: FDA-Public Use
  Company Number: None

PATIENT
  Age: 17 Year
  Sex: Male

DRUGS (2)
  1. LITHIUM CARBONATE. [Suspect]
     Active Substance: LITHIUM CARBONATE
     Indication: MANIA
     Dosage: ?          OTHER FREQUENCY:MORNING AND EVENIN;?
     Route: 048
     Dates: start: 20170309
  2. LITHIUM CARBONATE. [Suspect]
     Active Substance: LITHIUM CARBONATE
     Indication: BIPOLAR DISORDER
     Dosage: ?          OTHER FREQUENCY:MORNING AND EVENIN;?
     Route: 048
     Dates: start: 20170309

REACTIONS (1)
  - Antipsychotic drug level increased [None]

NARRATIVE: CASE EVENT DATE: 20190110
